FAERS Safety Report 23164927 (Version 2)
Quarter: 2023Q4

REPORT INFORMATION
  Report Type: Spontaneous
  Country: US (occurrence: US)
  Receive Date: 20231109
  Receipt Date: 20231205
  Transmission Date: 20240109
  Serious: Yes (Death, Life-Threatening, Hospitalization, Other)
  Sender: FDA-Public Use
  Company Number: US-BRISTOL-MYERS SQUIBB COMPANY-2023-160339

PATIENT
  Age: 88 Year
  Sex: Female

DRUGS (22)
  1. ELIQUIS [Suspect]
     Active Substance: APIXABAN
     Indication: Atrial fibrillation
     Route: 048
  2. ASPIRIN [Concomitant]
     Active Substance: ASPIRIN
     Indication: Product used for unknown indication
     Dosage: ASPIRIN LOW DOSE
     Route: 048
  3. ALLOPURINOL [Concomitant]
     Active Substance: ALLOPURINOL
     Indication: Product used for unknown indication
     Dosage: ALLOPURINOL 300 MG ORAL TABLET - 0.5 TABLET BY MOUTH DAILY
     Route: 048
  4. ATORVASTATIN [Concomitant]
     Active Substance: ATORVASTATIN
     Indication: Product used for unknown indication
     Route: 048
  5. CALCIUM CARBONATE [Concomitant]
     Active Substance: CALCIUM CARBONATE
     Indication: Product used for unknown indication
     Route: 048
  6. ZYRTEC [Concomitant]
     Active Substance: CETIRIZINE HYDROCHLORIDE
     Indication: Product used for unknown indication
     Route: 048
  7. VITAMIN D3 [Concomitant]
     Active Substance: CHOLECALCIFEROL
     Indication: Product used for unknown indication
     Route: 048
  8. CINNAMON\HERBALS [Concomitant]
     Active Substance: CINNAMON\HERBALS
     Indication: Product used for unknown indication
     Dosage: CINNAMON 500 MG ORAL CAPSULE-2 CAPSULE BY MOUTH DAILY, PREFERABLY WITH A MEAL
     Route: 048
  9. CITALOPRAM [Concomitant]
     Active Substance: CITALOPRAM HYDROBROMIDE
     Indication: Product used for unknown indication
     Dosage: CITALOPRAM 10 MG ORAL TABLET- 0.5 TABLETS BY MOUTH EVERY MONDAY, THURSDAY FOR 30 DAYS
     Route: 048
  10. CRANBERRY [Concomitant]
     Active Substance: CRANBERRY
     Indication: Product used for unknown indication
     Route: 048
  11. DOK [Concomitant]
     Active Substance: DOCUSATE SODIUM
     Indication: Product used for unknown indication
     Dosage: DOCUSATE (DOK) 100 MG ORAL CAPSULE-1 CAPSULE BY MOUTH AT BEDTIME
     Route: 048
  12. LISINOPRIL [Concomitant]
     Active Substance: LISINOPRIL
     Indication: Product used for unknown indication
     Dosage: 1 TABLET BY MOUTH DAILY FOR 30 DAYS
     Route: 048
  13. MECLIZINE [Concomitant]
     Active Substance: MECLIZINE HYDROCHLORIDE
     Indication: Dizziness
     Dosage: 1 TABLET BY MOUTH 3 TIMES A DAY AS NEEDED DIZZINESS
     Route: 048
  14. METFORMIN [Concomitant]
     Active Substance: METFORMIN HYDROCHLORIDE
     Indication: Product used for unknown indication
     Route: 048
  15. METOLAZONE [Concomitant]
     Active Substance: METOLAZONE
     Indication: Product used for unknown indication
     Dosage: 1 TABLET BY MOTH EVERY TUESDAY, CAN TAKE AN EXTRA DAY IF WEIGHT INCREASES 5 LBS
     Route: 048
  16. FISH OIL [Concomitant]
     Active Substance: FISH OIL
     Indication: Product used for unknown indication
     Route: 048
  17. OMEPRAZOLE [Concomitant]
     Active Substance: OMEPRAZOLE
     Indication: Product used for unknown indication
     Dosage: OMEPRAZOLE (OMEPRAZOLE 20 MG ORAL DELAYED RELEASE CAPSULE)- 1 CAPSULE BY MOUTH DAILY
     Route: 048
  18. MIRALAX [Concomitant]
     Active Substance: POLYETHYLENE GLYCOL 3350
     Indication: Product used for unknown indication
     Dosage: POLYETHYLENE GLYCOL 3350 (MIRALAX ORAL POWDER FOR RECONSTITUTION) 17 GRAM BY MOUTH DAILY
     Route: 048
  19. ROPINIROLE [Concomitant]
     Active Substance: ROPINIROLE
     Indication: Restlessness
     Dosage: ROPINIROLE (ROPINIROLE 0.5 MG ORAL TABLET)- 1-2 TABLETS BY MOUTH QHS (ONCE A DAY AT BEDTIME), OKAY T
     Route: 048
  20. TORSEMIDE [Concomitant]
     Active Substance: TORSEMIDE
     Indication: Product used for unknown indication
     Route: 048
  21. VITAMIN B12 [Concomitant]
     Active Substance: CYANOCOBALAMIN
     Indication: Product used for unknown indication
     Route: 048
  22. MINERALS\VITAMINS [Concomitant]
     Active Substance: MINERALS\VITAMINS
     Indication: Product used for unknown indication
     Dosage: MULTIVITAMIN WITH MINERALS- 1 TABLET BY MOUTH DAILY
     Route: 048

REACTIONS (25)
  - Cardiac failure congestive [Fatal]
  - Respiratory failure [Fatal]
  - Chronic kidney disease [Unknown]
  - Hypovolaemic shock [Unknown]
  - Acute kidney injury [Unknown]
  - Pulmonary oedema [Unknown]
  - Aortic stenosis [Unknown]
  - Mitral valve incompetence [Unknown]
  - Tricuspid valve incompetence [Unknown]
  - Pulmonary hypertension [Unknown]
  - Anaemia macrocytic [Unknown]
  - Hypertension [Unknown]
  - Restless legs syndrome [Unknown]
  - Hyperlipidaemia [Unknown]
  - Type 2 diabetes mellitus [Unknown]
  - Gout [Unknown]
  - Pericardial effusion [Unknown]
  - Fall [Unknown]
  - Femoral neck fracture [Unknown]
  - Wound [Unknown]
  - Peripheral arterial occlusive disease [Unknown]
  - Cerebral small vessel ischaemic disease [Unknown]
  - Cardiac tamponade [Unknown]
  - Prerenal failure [Unknown]
  - Left ventricular failure [Unknown]

NARRATIVE: CASE EVENT DATE: 20230927
